FAERS Safety Report 5928953 (Version 17)
Quarter: 2014Q4

REPORT INFORMATION
  Report Type: Spontaneous
  Country: US (occurrence: US)
  Receive Date: 20050630
  Receipt Date: 20141205
  Transmission Date: 20150529
  Serious: Yes (Hospitalization, Disabling, Other)
  Sender: FDA-Public Use
  Company Number: US-ROCHE-408870

PATIENT
  Age: 33 Year
  Sex: Male
  Weight: 81.6 kg

DRUGS (2)
  1. ACCUTANE [Suspect]
     Active Substance: ISOTRETINOIN
     Indication: ACNE
     Route: 048
     Dates: start: 200106, end: 200111
  2. TYLENOL [Concomitant]
     Active Substance: ACETAMINOPHEN
     Indication: HEADACHE

REACTIONS (17)
  - Intestinal obstruction [Unknown]
  - Dyspepsia [Unknown]
  - Somnolence [Unknown]
  - Osteoarthritis [Unknown]
  - Anaemia [Recovered/Resolved]
  - Colitis ulcerative [Unknown]
  - Gastrointestinal disorder [Unknown]
  - Intestinal haemorrhage [Unknown]
  - Depression [Unknown]
  - Crohn^s disease [Unknown]
  - Chorioretinopathy [Unknown]
  - Irritable bowel syndrome [Unknown]
  - Internal injury [Unknown]
  - Vision blurred [Unknown]
  - Oesophageal disorder [Unknown]
  - Inflammatory bowel disease [Unknown]
  - Feeling jittery [Unknown]

NARRATIVE: CASE EVENT DATE: 200203
